FAERS Safety Report 26211893 (Version 1)
Quarter: 2025Q4

REPORT INFORMATION
  Report Type: Report from Study
  Country: US (occurrence: US)
  Receive Date: 20251230
  Receipt Date: 20251230
  Transmission Date: 20260118
  Serious: Yes (Other)
  Sender: BAUSCH AND LOMB
  Company Number: US-BAUSCHBL-2025BNL034284

PATIENT
  Age: 61 Year
  Sex: Female

DRUGS (1)
  1. MIEBO [Suspect]
     Active Substance: PERFLUOROHEXYLOCTANE
     Indication: Product used for unknown indication
     Dosage: INSTILL 1 DROP INTO AFFECTED EYE(S) EVERY 6 HOYRS AS NEEDED
     Route: 047
     Dates: start: 20250315

REACTIONS (3)
  - Cataract operation [Unknown]
  - Visual impairment [Unknown]
  - Wrong product procured [Unknown]
